FAERS Safety Report 17618383 (Version 2)
Quarter: 2021Q1

REPORT INFORMATION
  Report Type: Spontaneous
  Country: US (occurrence: US)
  Receive Date: 20200402
  Receipt Date: 20210330
  Transmission Date: 20210419
  Serious: No
  Sender: FDA-Public Use
  Company Number: US-ROCHE-2523266

PATIENT
  Sex: Female

DRUGS (2)
  1. ERIVEDGE [Suspect]
     Active Substance: VISMODEGIB
     Indication: BASAL CELL CARCINOMA
     Dosage: ONGOING: YES
     Route: 048
     Dates: start: 20191226
  2. ERIVEDGE [Suspect]
     Active Substance: VISMODEGIB
     Route: 048

REACTIONS (6)
  - Constipation [Unknown]
  - Ageusia [Unknown]
  - Taste disorder [Unknown]
  - Alopecia [Unknown]
  - Weight decreased [Unknown]
  - Fatigue [Unknown]
